FAERS Safety Report 6582285-9 (Version None)
Quarter: 2010Q1

REPORT INFORMATION
  Report Type: 
  Country: None (occurrence: None)
  Receive Date: 20100212
  Receipt Date: 20100212
  Transmission Date: 20100710
  Serious: Yes (Hospitalization)
  Sender: FDA-Public Use
  Company Number: None

PATIENT
  Sex: Female
  Weight: 66 kg

DRUGS (2)
  1. TAXOL [Suspect]
     Dosage: 147 MG
     Dates: end: 20081205
  2. HERCEPTIN [Suspect]
     Dosage: 138 MG
     Dates: end: 20081205

REACTIONS (10)
  - ABDOMINAL PAIN [None]
  - DEHYDRATION [None]
  - DIARRHOEA [None]
  - FATIGUE [None]
  - HYPOCALCAEMIA [None]
  - NAUSEA [None]
  - ORTHOSTATIC HYPOTENSION [None]
  - PYREXIA [None]
  - VOMITING [None]
  - WEIGHT DECREASED [None]
